FAERS Safety Report 10137324 (Version 2)
Quarter: 2014Q2

REPORT INFORMATION
  Report Type: Spontaneous
  Country: US (occurrence: None)
  Receive Date: 20140425
  Receipt Date: 20140509
  Transmission Date: 20141212
  Serious: Yes (Death)
  Sender: FDA-Public Use
  Company Number: UTC-047531

PATIENT
  Age: 66 Year
  Sex: Female
  Weight: 70.76 kg

DRUGS (2)
  1. REMODULIN [Suspect]
     Indication: COR PULMONALE CHRONIC
     Dosage: 95.04 UG/KG (0.066 UG/KG,1 IN 1 MIN),INTRAVENOUS DRIP
     Route: 041
     Dates: start: 20120416
  2. TRACLEER (BOSENTAN) [Concomitant]

REACTIONS (3)
  - Death [None]
  - Pulmonary hypertension [None]
  - Cardiac failure [None]
